FAERS Safety Report 20062266 (Version 1)
Quarter: 2021Q4

REPORT INFORMATION
  Report Type: Spontaneous
  Country: GB (occurrence: GB)
  Receive Date: 20211112
  Receipt Date: 20211112
  Transmission Date: 20220303
  Serious: Yes (Disabling, Other)
  Sender: FDA-Public Use
  Company Number: None

PATIENT
  Age: 22 Year
  Sex: Female
  Weight: 64 kg

DRUGS (2)
  1. TOPIRAMATE [Suspect]
     Active Substance: TOPIRAMATE
     Indication: Ill-defined disorder
     Dosage: UNKNOWN
     Route: 048
     Dates: start: 20211004, end: 20211021
  2. AMITRIPTYLINE [Concomitant]
     Active Substance: AMITRIPTYLINE
     Indication: Ill-defined disorder
     Dosage: UNKNOWN
     Dates: start: 20210601, end: 20210919

REACTIONS (7)
  - Abdominal distension [Recovered/Resolved]
  - Decreased appetite [Unknown]
  - Nausea [Unknown]
  - Eating disorder [Unknown]
  - Weight decreased [Unknown]
  - Fatigue [Unknown]
  - Therapy cessation [Unknown]

NARRATIVE: CASE EVENT DATE: 20211001
